FAERS Safety Report 25158406 (Version 1)
Quarter: 2025Q2

REPORT INFORMATION
  Report Type: Spontaneous
  Country: DE (occurrence: DE)
  Receive Date: 20250404
  Receipt Date: 20250404
  Transmission Date: 20250717
  Serious: Yes (Death, Other)
  Sender: GENMAB
  Company Number: DE-ABBVIE-6209906

PATIENT
  Age: 45 Year
  Sex: Male

DRUGS (2)
  1. EPCORITAMAB [Suspect]
     Active Substance: EPCORITAMAB
     Indication: Product used for unknown indication
     Route: 058
  2. EPCORITAMAB [Suspect]
     Active Substance: EPCORITAMAB
     Route: 058
     Dates: start: 202409

REACTIONS (8)
  - Death [Fatal]
  - Multiple organ dysfunction syndrome [Unknown]
  - Sepsis [Unknown]
  - Tumour ulceration [Unknown]
  - Delirium [Unknown]
  - Anxiety [Unknown]
  - Blood lactate dehydrogenase decreased [Unknown]
  - Thrombocytopenia [Unknown]
